FAERS Safety Report 22400794 (Version 4)
Quarter: 2024Q1

REPORT INFORMATION
  Report Type: Report from Study
  Country: US (occurrence: US)
  Receive Date: 20230602
  Receipt Date: 20240112
  Transmission Date: 20240410
  Serious: Yes (Other)
  Sender: FDA-Public Use
  Company Number: US-TAKEDA-2023TUS050401

PATIENT
  Age: 61 Year
  Sex: Female

DRUGS (1)
  1. VEDOLIZUMAB [Suspect]
     Active Substance: VEDOLIZUMAB
     Indication: Crohn^s disease
     Dosage: 300 MILLIGRAM
     Route: 042

REACTIONS (7)
  - Basal cell carcinoma [Unknown]
  - Crohn^s disease [Not Recovered/Not Resolved]
  - Brain fog [Unknown]
  - Malaise [Unknown]
  - Drug hypersensitivity [Unknown]
  - Inappropriate schedule of product administration [None]
  - Cough [Unknown]

NARRATIVE: CASE EVENT DATE: 20211221
